FAERS Safety Report 5819244-7 (Version None)
Quarter: 2008Q3

REPORT INFORMATION
  Report Type: 
  Country: None (occurrence: None)
  Receive Date: 20080723
  Receipt Date: 20080711
  Transmission Date: 20090109
  Serious: Yes (Hospitalization)
  Sender: FDA-Public Use
  Company Number: FR-ROCHE-478124

PATIENT
  Sex: Male
  Weight: 59 kg

DRUGS (13)
  1. MYCOPHENOLATE MOFETIL [Suspect]
     Route: 048
     Dates: start: 20061017
  2. NEORAL [Suspect]
     Dosage: TDD REPORTED AS 175.
     Route: 065
     Dates: start: 20061020
  3. NEORAL [Suspect]
     Route: 065
     Dates: start: 20061118, end: 20061124
  4. NEORAL [Suspect]
     Dosage: TDD REPORTED AS 175.
     Route: 065
     Dates: start: 20061125
  5. MOPRAL [Concomitant]
     Dates: start: 20061026
  6. ISRADIPINE [Concomitant]
     Dates: start: 20061018
  7. ISRADIPINE [Concomitant]
     Dates: start: 20061019
  8. ISRADIPINE [Concomitant]
     Dates: start: 20061020
  9. CIFLOX [Concomitant]
     Dates: start: 20061026
  10. BACTRIM DS [Concomitant]
     Dates: start: 20061020
  11. CELECTOL [Concomitant]
     Dates: start: 20061202
  12. COZAAR [Concomitant]
     Dates: start: 20061206
  13. DEROXAT [Concomitant]
     Dates: start: 20061023

REACTIONS (2)
  - ARTHRITIS [None]
  - RHEUMATOID ARTHRITIS [None]
